FAERS Safety Report 9259985 (Version 1)
Quarter: 2013Q2

REPORT INFORMATION
  Report Type: Spontaneous
  Country: US (occurrence: US)
  Receive Date: 20130429
  Receipt Date: 20130429
  Transmission Date: 20140414
  Serious: No
  Sender: FDA-Public Use
  Company Number: US-009507513-1304USA014480

PATIENT
  Age: 67 Year
  Sex: Female

DRUGS (1)
  1. TRUSOPT [Suspect]
     Indication: GLAUCOMA
     Dosage: ONE DROP IN EACH EYE, TWICE A DAY AT NIGHT
     Route: 047
     Dates: start: 200904, end: 20130408

REACTIONS (1)
  - Pruritus [Recovered/Resolved]
